FAERS Safety Report 13168622 (Version 1)
Quarter: 2017Q1

REPORT INFORMATION
  Report Type: Spontaneous
  Country: GB (occurrence: GB)
  Receive Date: 20170131
  Receipt Date: 20170131
  Transmission Date: 20170428
  Serious: Yes (Other)
  Sender: FDA-Public Use
  Company Number: GB-TEVA-733990ACC

PATIENT
  Age: 74 Year
  Sex: Female
  Weight: 79 kg

DRUGS (6)
  1. AMLODIPINE [Concomitant]
     Active Substance: AMLODIPINE BESYLATE
     Dosage: 1 DOSAGE FORMS DAILY;
     Dates: start: 20160121, end: 20170111
  2. LATANOPROST. [Concomitant]
     Active Substance: LATANOPROST
     Dosage: 1 GTT DAILY;
     Dates: start: 20161116, end: 20161214
  3. TRAVOPROST [Concomitant]
     Active Substance: TRAVOPROST
     Dosage: 1 GTT DAILY;
     Dates: start: 20160513
  4. CLENIL MODULITE [Concomitant]
     Active Substance: BECLOMETHASONE DIPROPIONATE
     Dosage: 4 DOSAGE FORMS DAILY;
     Route: 055
     Dates: start: 20150921
  5. VENTOLIN [Concomitant]
     Active Substance: ALBUTEROL SULFATE
     Route: 055
     Dates: start: 20150921
  6. INDAPAMIDE. [Suspect]
     Active Substance: INDAPAMIDE
     Dosage: 1 DOSAGE FORMS DAILY;
     Dates: start: 20161229

REACTIONS (1)
  - Muscle spasms [Recovered/Resolved]

NARRATIVE: CASE EVENT DATE: 20170111
